FAERS Safety Report 9128456 (Version 1)
Quarter: 2013Q1

REPORT INFORMATION
  Report Type: Spontaneous
  Country: US (occurrence: US)
  Receive Date: 20130228
  Receipt Date: 20130228
  Transmission Date: 20140127
  Serious: No
  Sender: FDA-Public Use
  Company Number: US-GLAXOSMITHKLINE-A0990338A

PATIENT
  Sex: Female

DRUGS (2)
  1. SUMATRIPTAN SUCCINATE [Suspect]
     Indication: MIGRAINE
     Dosage: 100MG UNKNOWN
     Route: 065
     Dates: start: 201208
  2. NAPROXEN [Suspect]
     Indication: MIGRAINE
     Dosage: 500MG UNKNOWN
     Route: 065
     Dates: start: 201208

REACTIONS (1)
  - Drug ineffective [Unknown]
